FAERS Safety Report 7824126-5 (Version None)
Quarter: 2011Q4

REPORT INFORMATION
  Report Type: 
  Country: None (occurrence: None)
  Receive Date: 20111019
  Receipt Date: 20111010
  Transmission Date: 20120403
  Serious: Yes (Hospitalization)
  Sender: FDA-Public Use
  Company Number: FI-NOVOPROD-336948

PATIENT

DRUGS (2)
  1. METFORMIN MYLAN [Concomitant]
     Indication: DIABETES MELLITUS
     Dosage: 2 G, QD
     Route: 048
     Dates: start: 20020101
  2. VICTOZA [Suspect]
     Indication: DIABETES MELLITUS
     Dosage: 0.6 MG, QD
     Route: 058
     Dates: start: 20110912, end: 20110917

REACTIONS (2)
  - GASTROOESOPHAGEAL REFLUX DISEASE [None]
  - VOMITING [None]
